FAERS Safety Report 6463977-9 (Version None)
Quarter: 2009Q4

REPORT INFORMATION
  Report Type: 
  Country: None (occurrence: None)
  Receive Date: 20091130
  Receipt Date: 20091130
  Transmission Date: 20100525
  Serious: Yes (Other)
  Sender: FDA-Public Use
  Company Number: None

PATIENT
  Age: 47 Year
  Sex: Male
  Weight: 102.0593 kg

DRUGS (1)
  1. FLONASE [Suspect]
     Indication: EUSTACHIAN TUBE OBSTRUCTION
     Dosage: 200MG DAILY NASAL
     Route: 045
     Dates: start: 20091117, end: 20091125

REACTIONS (2)
  - AGEUSIA [None]
  - ANOSMIA [None]
